FAERS Safety Report 9307827 (Version 6)
Quarter: 2024Q1

REPORT INFORMATION
  Report Type: Other
  Country: CA (occurrence: None)
  Receive Date: 20130524
  Receipt Date: 20240221
  Transmission Date: 20240410
  Serious: Yes (Life-Threatening, Hospitalization, Other)
  Sender: FDA-Public Use
  Company Number: CA-ROCHE-1139298

PATIENT
  Age: 32 Year
  Sex: Female
  Weight: 86 kg

DRUGS (30)
  1. ACTEMRA [Suspect]
     Active Substance: TOCILIZUMAB
     Indication: Rheumatoid arthritis
     Dosage: PIRS RECEIVED, HOWEVER BATCH/LOT NUMBERS WERE NOT PROVIDED. INDEPENDENT CLINIC.
     Route: 042
     Dates: start: 20120829, end: 20140224
  2. ACTEMRA [Suspect]
     Active Substance: TOCILIZUMAB
     Route: 042
     Dates: start: 20140319
  3. ACTEMRA [Suspect]
     Active Substance: TOCILIZUMAB
     Route: 042
     Dates: start: 20170725
  4. ACTEMRA [Suspect]
     Active Substance: TOCILIZUMAB
     Route: 042
     Dates: start: 20170926
  5. ACTEMRA [Suspect]
     Active Substance: TOCILIZUMAB
     Dosage: 66TH INFUSION
     Route: 042
     Dates: start: 20171219
  6. ACTEMRA [Suspect]
     Active Substance: TOCILIZUMAB
     Dosage: 71TH INFUSION
     Route: 042
     Dates: start: 20180508
  7. ACTEMRA [Suspect]
     Active Substance: TOCILIZUMAB
     Dosage: 72 INFUSION
     Route: 042
     Dates: start: 20180605
  8. ACTEMRA [Suspect]
     Active Substance: TOCILIZUMAB
     Dosage: NO PIRS RECEIVED BETWEEN 09/JAN/2017 TO 05/JUN/2018. DOSAGE REMAINED THE SAME PER PRESCRIPTION ENROL
     Route: 042
     Dates: start: 20140715, end: 20211027
  9. ACTEMRA [Suspect]
     Active Substance: TOCILIZUMAB
     Dosage: PIRS RECEIVED, HOWEVER BATCH/LOT NUMBERS WERE NOT PROVIDED. INDEPENDENT CLINIC
     Route: 042
     Dates: start: 20140328, end: 20140617
  10. ACTEMRA [Suspect]
     Active Substance: TOCILIZUMAB
     Route: 042
     Dates: start: 20140328
  11. ACTEMRA [Suspect]
     Active Substance: TOCILIZUMAB
     Dosage: NO PIRS RECEIVED BETWEEN 09-JAN-2017 TO 05-JUN- 2018. DOSAGE REMAINED THE SAME?AS PER PRESCRIPTIONS
     Route: 042
     Dates: start: 20150715
  12. ACTEMRA [Suspect]
     Active Substance: TOCILIZUMAB
     Route: 042
     Dates: start: 20211125, end: 20220912
  13. ACTEMRA [Suspect]
     Active Substance: TOCILIZUMAB
     Route: 042
     Dates: start: 20221011
  14. VOLTAREN [Concomitant]
     Active Substance: DICLOFENAC SODIUM
     Indication: Product used for unknown indication
     Dosage: PRN ; ONGOING
     Route: 001
  15. ARAVA [Concomitant]
     Active Substance: LEFLUNOMIDE
     Indication: Product used for unknown indication
  16. CELEBREX [Concomitant]
     Active Substance: CELECOXIB
     Indication: Product used for unknown indication
     Dosage: AS REQUIRED
  17. CELEBREX [Concomitant]
     Active Substance: CELECOXIB
  18. PREVACID [Concomitant]
     Active Substance: LANSOPRAZOLE
  19. VENTOLIN [Concomitant]
     Active Substance: ALBUTEROL SULFATE
     Indication: Asthma
  20. ADVAIR HFA [Concomitant]
     Active Substance: FLUTICASONE PROPIONATE\SALMETEROL XINAFOATE
     Indication: Product used for unknown indication
  21. DEPO-PROVERA [Concomitant]
     Active Substance: MEDROXYPROGESTERONE ACETATE
     Indication: Product used for unknown indication
  22. IMURAN [Concomitant]
     Active Substance: AZATHIOPRINE
     Indication: Product used for unknown indication
  23. MICARDIS [Concomitant]
     Active Substance: TELMISARTAN
     Indication: Product used for unknown indication
  24. CETIRIZINE HYDROCHLORIDE [Concomitant]
     Active Substance: CETIRIZINE HYDROCHLORIDE
  25. MONTELUKAST [Concomitant]
     Active Substance: MONTELUKAST SODIUM
  26. SPIRIVA [Concomitant]
     Active Substance: TIOTROPIUM BROMIDE MONOHYDRATE
  27. EPIPEN [Concomitant]
     Active Substance: EPINEPHRINE
  28. VIGAMOX [Concomitant]
     Active Substance: MOXIFLOXACIN HYDROCHLORIDE
     Indication: Product used for unknown indication
  29. NASONEX [Concomitant]
     Active Substance: MOMETASONE FUROATE
     Dosage: 2 SPRAYS BEFORE BEDTIME.
  30. PREDNISONE [Concomitant]
     Active Substance: PREDNISONE
     Indication: Product used for unknown indication
     Dosage: WILL DECREASE TO 30MG ON 03-FEB-2023

REACTIONS (41)
  - Anaphylactic reaction [Recovered/Resolved]
  - Device breakage [Unknown]
  - Angioedema [Unknown]
  - Aphonia [Not Recovered/Not Resolved]
  - Vertigo [Recovered/Resolved]
  - Angioedema [Not Recovered/Not Resolved]
  - Chest discomfort [Recovered/Resolved]
  - Headache [Unknown]
  - Tooth infection [Unknown]
  - Rhinitis allergic [Not Recovered/Not Resolved]
  - Urinary tract infection [Recovered/Resolved]
  - Allergy to animal [Not Recovered/Not Resolved]
  - Nasopharyngitis [Recovering/Resolving]
  - Influenza [Unknown]
  - Red blood cell count increased [Not Recovered/Not Resolved]
  - Fatigue [Unknown]
  - Arthralgia [Unknown]
  - Haemoglobin increased [Not Recovered/Not Resolved]
  - Infusion related reaction [Recovered/Resolved]
  - Pharyngitis [Recovered/Resolved]
  - Hypersensitivity [Recovered/Resolved]
  - Dysphonia [Unknown]
  - Blood pressure diastolic increased [Unknown]
  - Weight increased [Recovering/Resolving]
  - Blood pressure increased [Unknown]
  - Heart rate increased [Unknown]
  - Pulmonary pain [Not Recovered/Not Resolved]
  - Oropharyngeal pain [Not Recovered/Not Resolved]
  - Pharyngeal swelling [Not Recovered/Not Resolved]
  - Total lung capacity abnormal [Not Recovered/Not Resolved]
  - Gastrooesophageal reflux disease [Unknown]
  - Blood pressure diastolic abnormal [Unknown]
  - Pain [Not Recovered/Not Resolved]
  - Gait disturbance [Not Recovered/Not Resolved]
  - Blood pressure systolic increased [Unknown]
  - Nervousness [Unknown]
  - Weight decreased [Unknown]
  - Dyspnoea [Recovering/Resolving]
  - Red blood cell count decreased [Unknown]
  - Pericardial effusion [Unknown]
  - Pericarditis [Unknown]

NARRATIVE: CASE EVENT DATE: 20120926
